FAERS Safety Report 5810963-5 (Version None)
Quarter: 2008Q3

REPORT INFORMATION
  Report Type: 
  Country: None (occurrence: None)
  Receive Date: 20080716
  Receipt Date: 20080708
  Transmission Date: 20090109
  Serious: Yes (Hospitalization)
  Sender: FDA-Public Use
  Company Number: PHHO2008US08252

PATIENT
  Sex: Female
  Weight: 49.5 kg

DRUGS (1)
  1. CGP 57148B T35717+ [Suspect]
     Indication: SYSTEMIC SCLEROSIS
     Dosage: 300 MG, QD
     Route: 048
     Dates: start: 20080229, end: 20080626

REACTIONS (8)
  - DIASTOLIC DYSFUNCTION [None]
  - DYSPNOEA [None]
  - FLUID OVERLOAD [None]
  - LOWER GASTROINTESTINAL HAEMORRHAGE [None]
  - OEDEMA PERIPHERAL [None]
  - PERICARDIAL EFFUSION [None]
  - PLEURAL EFFUSION [None]
  - POLYURIA [None]
